FAERS Safety Report 10773915 (Version 1)
Quarter: 2015Q1

REPORT INFORMATION
  Report Type: Spontaneous
  Country: ES (occurrence: ES)
  Receive Date: 20150208
  Receipt Date: 20150208
  Transmission Date: 20150721
  Serious: Yes (Other)
  Sender: FDA-Public Use
  Company Number: ES-BIOGEN USA-2015BI012750

PATIENT
  Sex: Female

DRUGS (1)
  1. TYSABRI [Suspect]
     Active Substance: NATALIZUMAB
     Indication: MULTIPLE SCLEROSIS
     Route: 042

REACTIONS (2)
  - Progressive multifocal leukoencephalopathy [Unknown]
  - Immune reconstitution inflammatory syndrome [Unknown]
